FAERS Safety Report 4939767-2 (Version None)
Quarter: 2006Q1

REPORT INFORMATION
  Report Type: 
  Country: None (occurrence: None)
  Receive Date: 20060307
  Receipt Date: 20060302
  Transmission Date: 20060701
  Serious: Yes (Hospitalization, Other)
  Sender: FDA-Public Use
  Company Number: 2005125203

PATIENT
  Age: 65 Year
  Sex: Male

DRUGS (9)
  1. NEURONTIN [Suspect]
     Indication: NEURALGIA
     Dosage: 1200 MG (400 MG, 3 IN 1 D), ORAL
     Route: 048
     Dates: start: 20041229, end: 20050614
  2. NEURONTIN [Suspect]
     Indication: RADICULITIS
     Dosage: 1200 MG (400 MG, 3 IN 1 D), ORAL
     Route: 048
     Dates: start: 20041229, end: 20050614
  3. TRAMADOL HCL [Suspect]
     Indication: NEURALGIA
     Dosage: 200 MG (100 MG, 2 IN 1 D), ORAL
     Route: 048
     Dates: start: 20050111, end: 20050614
  4. TRAMADOL HCL [Suspect]
     Indication: RADICULITIS
     Dosage: 200 MG (100 MG, 2 IN 1 D), ORAL
     Route: 048
     Dates: start: 20050111, end: 20050614
  5. LOSARTAN POTASSIUM [Concomitant]
  6. FUROSEMIDE [Concomitant]
  7. ACETYLSALICYLIC ACID SRT [Concomitant]
  8. SIMVASTATIN [Concomitant]
  9. AMLODIPINE [Concomitant]

REACTIONS (12)
  - ASTHENIA [None]
  - BLOOD GLUCOSE INCREASED [None]
  - BLOOD SODIUM DECREASED [None]
  - CONFUSIONAL STATE [None]
  - CONTUSION [None]
  - DIFFICULTY IN WALKING [None]
  - DISORIENTATION [None]
  - DRUG INTERACTION [None]
  - FALL [None]
  - HALLUCINATION, VISUAL [None]
  - INCOHERENT [None]
  - METABOLIC ENCEPHALOPATHY [None]
